FAERS Safety Report 23706245 (Version 1)
Quarter: 2024Q2

REPORT INFORMATION
  Report Type: Spontaneous
  Country: US (occurrence: US)
  Receive Date: 20240404
  Receipt Date: 20240404
  Transmission Date: 20240715
  Serious: No
  Sender: FDA-Public Use
  Company Number: US-BAUSCH-BL-2024-005164

PATIENT
  Age: 81 Year
  Sex: Female

DRUGS (2)
  1. XIFAXAN [Suspect]
     Active Substance: RIFAXIMIN
     Indication: Irritable bowel syndrome
     Dosage: FIRST COURSE (TWO 14-DAY COURSES)
     Route: 065
     Dates: start: 20231102, end: 20231116
  2. XIFAXAN [Suspect]
     Active Substance: RIFAXIMIN
     Dosage: SECOND COURSE (TWO 14-DAY COURSES)
     Route: 065
     Dates: start: 20231219, end: 20240102

REACTIONS (2)
  - Irritable bowel syndrome [Recovered/Resolved]
  - Disease recurrence [Recovered/Resolved]

NARRATIVE: CASE EVENT DATE: 20231201
